FAERS Safety Report 8007164-1 (Version None)
Quarter: 2011Q4

REPORT INFORMATION
  Report Type: 
  Country: None (occurrence: None)
  Receive Date: 20111227
  Receipt Date: 20111216
  Transmission Date: 20120403
  Serious: Yes (Other)
  Sender: FDA-Public Use
  Company Number: FR-JNJFOC-20111210628

PATIENT
  Age: 12 Year
  Sex: Female
  Weight: 57 kg

DRUGS (1)
  1. TRAMADOL HCL [Suspect]
     Indication: HEADACHE
     Dosage: 100 MG X 6 TABLETS
     Route: 048
     Dates: start: 20111111, end: 20111111

REACTIONS (5)
  - OVERDOSE [None]
  - ABDOMINAL PAIN UPPER [None]
  - VOMITING [None]
  - INCORRECT DOSE ADMINISTERED [None]
  - MEDICATION ERROR [None]
